FAERS Safety Report 7999399-9 (Version None)
Quarter: 2011Q4

REPORT INFORMATION
  Report Type: 
  Country: None (occurrence: None)
  Receive Date: 20111221
  Receipt Date: 20111209
  Transmission Date: 20120403
  Serious: Yes (Hospitalization, Other)
  Sender: FDA-Public Use
  Company Number: US-ELI_LILLY_AND_COMPANY-US201110005349

PATIENT
  Sex: Female

DRUGS (1)
  1. HUMULIN 70/30 [Suspect]

REACTIONS (5)
  - BLINDNESS UNILATERAL [None]
  - HOSPITALISATION [None]
  - CATARACT [None]
  - RETINOPATHY [None]
  - VISUAL IMPAIRMENT [None]
